FAERS Safety Report 17849995 (Version 1)
Quarter: 2020Q2

REPORT INFORMATION
  Report Type: Spontaneous
  Country: GB (occurrence: GB)
  Receive Date: 20200602
  Receipt Date: 20200602
  Transmission Date: 20200714
  Serious: Yes (Life-Threatening, Other)
  Sender: FDA-Public Use
  Company Number: GB-TEVA-2020-GB-1242396

PATIENT
  Age: 66 Year
  Sex: Male

DRUGS (11)
  1. THIAMINE. [Concomitant]
     Active Substance: THIAMINE
  2. OMEPRAZOLE. [Concomitant]
     Active Substance: OMEPRAZOLE
  3. ACCORD HEALTHCARE RAMIPRIL [Concomitant]
  4. CODEINE [Concomitant]
     Active Substance: CODEINE
  5. ESCITALOPRAM OXALATE. [Concomitant]
     Active Substance: ESCITALOPRAM OXALATE
  6. FENOFIBRATE MICRONISED [Concomitant]
     Active Substance: FENOFIBRATE
  7. ACCORD-UK VITAMIN B COMPOUND [Concomitant]
  8. PARACETAMOL [Concomitant]
     Active Substance: ACETAMINOPHEN
  9. WARFARIN [Suspect]
     Active Substance: WARFARIN
     Indication: ANTIPHOSPHOLIPID SYNDROME
     Route: 048
  10. THYROXINE [Concomitant]
     Active Substance: LEVOTHYROXINE
  11. ATENOLOL. [Concomitant]
     Active Substance: ATENOLOL

REACTIONS (1)
  - International normalised ratio increased [Recovered/Resolved]
